FAERS Safety Report 8579554-X (Version None)
Quarter: 2012Q3

REPORT INFORMATION
  Report Type: 
  Country: None (occurrence: None)
  Receive Date: 20120808
  Receipt Date: 20120730
  Transmission Date: 20120928
  Serious: No
  Sender: FDA-Public Use
  Company Number: US-JNJFOC-20120600731

PATIENT
  Sex: Female
  Weight: 105.24 kg

DRUGS (9)
  1. COLACE [Concomitant]
     Indication: ABNORMAL FAECES
     Dosage: IN THE EVENING
     Route: 048
  2. HYDROCHLOROTHIAZIDE [Concomitant]
     Indication: BLOOD PRESSURE
     Route: 048
  3. MULTIPLE VITAMIN [Concomitant]
     Dosage: EVERY AM
  4. XARELTO [Suspect]
     Indication: THROMBOSIS PROPHYLAXIS
     Route: 048
     Dates: start: 20120508, end: 20120528
  5. OXYCODONE HCL [Concomitant]
     Indication: PAIN
     Dosage: AS NEEDED
     Route: 048
     Dates: start: 20120501
  6. SIMVASTATIN [Concomitant]
     Dosage: IN THE EVENING
  7. XARELTO [Suspect]
     Indication: HIP ARTHROPLASTY
     Route: 048
     Dates: start: 20120508, end: 20120528
  8. TOPAMAX [Concomitant]
     Indication: MIGRAINE
     Dosage: IN THE EVENING
     Route: 048
  9. TRIGELS-F FORTE [Concomitant]

REACTIONS (3)
  - ARTHRALGIA [None]
  - DRUG DOSE OMISSION [None]
  - SEROMA [None]
